FAERS Safety Report 13593787 (Version 5)
Quarter: 2019Q3

REPORT INFORMATION
  Report Type: Other
  Country: CA (occurrence: CA)
  Receive Date: 20170530
  Receipt Date: 20190916
  Transmission Date: 20191004
  Serious: Yes (Other)
  Sender: FDA-Public Use
  Company Number: CA-ASCEND THERAPEUTICS-2021363

PATIENT
  Age: 44 Year
  Sex: Male

DRUGS (3)
  1. ESTROGEL [Suspect]
     Active Substance: ESTRADIOL
     Indication: OESTROGEN THERAPY
     Route: 061
  2. PROGESTERONE. [Suspect]
     Active Substance: PROGESTERONE
     Route: 048
  3. ESTRADIOL. [Suspect]
     Active Substance: ESTRADIOL
     Route: 030

REACTIONS (2)
  - Deep vein thrombosis [Recovered/Resolved]
  - Malaise [Recovered/Resolved]
